FAERS Safety Report 7929476-X (Version None)
Quarter: 2011Q4

REPORT INFORMATION
  Report Type: 
  Country: None (occurrence: None)
  Receive Date: 20111121
  Receipt Date: 20111115
  Transmission Date: 20120403
  Serious: No
  Sender: FDA-Public Use
  Company Number: US-BIOGENIDEC-2011BI043607

PATIENT
  Age: 44 Year
  Sex: Female

DRUGS (1)
  1. AVONEX [Suspect]
     Indication: MULTIPLE SCLEROSIS
     Route: 030
     Dates: start: 20100504

REACTIONS (5)
  - RHINORRHOEA [None]
  - NASAL CONGESTION [None]
  - MIGRAINE [None]
  - HYPERHIDROSIS [None]
  - HEADACHE [None]
